FAERS Safety Report 7045016-4 (Version None)
Quarter: 2010Q3

REPORT INFORMATION
  Report Type: 
  Country: None (occurrence: None)
  Receive Date: 20100929
  Receipt Date: 20100615
  Transmission Date: 20110219
  Serious: No
  Sender: FDA-Public Use
  Company Number: US-WYE-H16069310

PATIENT
  Sex: Female

DRUGS (2)
  1. PRISTIQ [Suspect]
     Dosage: 100 MG UNSPECIFIED FREQUENCY ; 50 MG UNSPECIFIED FREQUENCY
     Dates: start: 20100101, end: 20100101
  2. PRISTIQ [Suspect]
     Dosage: 100 MG UNSPECIFIED FREQUENCY ; 50 MG UNSPECIFIED FREQUENCY
     Dates: start: 20100101

REACTIONS (2)
  - DRUG INEFFECTIVE [None]
  - NAUSEA [None]
